FAERS Safety Report 5343601-9 (Version None)
Quarter: 2007Q2

REPORT INFORMATION
  Report Type: 
  Country: None (occurrence: None)
  Receive Date: 20070531
  Receipt Date: 20070518
  Transmission Date: 20071010
  Serious: Yes (Death)
  Sender: FDA-Public Use
  Company Number: 16578

PATIENT
  Age: 20 Year
  Sex: Male

DRUGS (6)
  1. VINCRISTINE [Suspect]
     Indication: BRAIN NEOPLASM MALIGNANT
     Dosage: 1.5 MG/M2 OTH
     Route: 050
  2. ETOPOSIDE [Suspect]
     Indication: BRAIN NEOPLASM MALIGNANT
     Dosage: 75 MG/M2 DAILY
  3. ETOPOSIDE [Suspect]
     Indication: BRAIN NEOPLASM MALIGNANT
     Dosage: 75 MG/M2 DAILY
  4. CISPLATIN [Suspect]
     Indication: BRAIN NEOPLASM MALIGNANT
     Dosage: 90 MG/M2
  5. CARBOPLATIN [Suspect]
     Indication: BRAIN NEOPLASM MALIGNANT
     Dosage: 400 MG/M2 OTH
     Route: 050
  6. CYCHLOPHOSPHAMIDE [Suspect]

REACTIONS (4)
  - CONVULSION [None]
  - DISORIENTATION [None]
  - GLIOBLASTOMA MULTIFORME [None]
  - MEMORY IMPAIRMENT [None]
